FAERS Safety Report 6168403-5 (Version None)
Quarter: 2009Q2

REPORT INFORMATION
  Report Type: 
  Country: None (occurrence: None)
  Receive Date: 20090427
  Receipt Date: 20090421
  Transmission Date: 20091009
  Serious: Yes (Other)
  Sender: FDA-Public Use
  Company Number: DE-BRISTOL-MYERS SQUIBB COMPANY-14596522

PATIENT

DRUGS (1)
  1. SUSTIVA [Suspect]
     Dosage: SNIFF

REACTIONS (1)
  - DRUG ABUSE [None]
